FAERS Safety Report 25633626 (Version 1)
Quarter: 2025Q3

REPORT INFORMATION
  Report Type: Report from Study
  Country: US (occurrence: US)
  Receive Date: 20250801
  Receipt Date: 20250801
  Transmission Date: 20251020
  Serious: Yes (Other)
  Sender: GILEAD
  Company Number: US-GILEAD-2025-0722668

PATIENT
  Sex: Female

DRUGS (1)
  1. AMBRISENTAN [Suspect]
     Active Substance: AMBRISENTAN
     Indication: Ill-defined disorder
     Dosage: 10 MG, QD
     Route: 048
     Dates: start: 20230616

REACTIONS (6)
  - Cardiac failure congestive [Unknown]
  - Dyspnoea [Unknown]
  - Hypoacusis [Unknown]
  - Chronic obstructive pulmonary disease [Unknown]
  - Emphysema [Unknown]
  - Product use in unapproved indication [Unknown]
